FAERS Safety Report 4746699-1 (Version None)
Quarter: 2005Q3

REPORT INFORMATION
  Report Type: 
  Country: None (occurrence: None)
  Receive Date: 20050815
  Receipt Date: 20050804
  Transmission Date: 20060218
  Serious: Yes (Hospitalization, Other)
  Sender: FDA-Public Use
  Company Number: ITWYE447422FEB05

PATIENT
  Age: 41 Year
  Sex: Male

DRUGS (20)
  1. GEMTUZUMAB OZOGAMICIN [Suspect]
     Indication: ACUTE PROMYELOCYTIC LEUKAEMIA
     Dosage: 10.2 MG 1X PER 1 DAY; SECOND DOSE
     Dates: start: 20050126, end: 20050126
  2. GEMTUZUMAB OZOGAMICIN [Suspect]
     Indication: ACUTE PROMYELOCYTIC LEUKAEMIA
     Dosage: 10.2 MG 1X PER 1 DAY; SECOND DOSE
     Dates: start: 20050607, end: 20050607
  3. FEXOFENAIDNE (FEXOFENADINE) [Concomitant]
  4. ESOMEPRAZOLE (ESOMEPRAZOLE) [Concomitant]
  5. MAGALDRATE (MAGALDRATE) [Concomitant]
  6. DEXAMETHASONE [Concomitant]
  7. CHLORPHENAMINE (CHLORPHENAMINE) [Concomitant]
  8. ONDANSETRON (ONDANSETRON) [Concomitant]
  9. ELECTROLYTE SOLUTOINS (ELECTROLYTE SOLUTIONS) [Concomitant]
  10. SODIUM BICARBONATE IN PLASTIC CONTAINER [Concomitant]
  11. ALLOPURINOL [Concomitant]
  12. LEVOFLOXACIN [Concomitant]
  13. FLUCONAZOLE [Concomitant]
  14. TEICOPLANIN (TEICOPLANIN) [Concomitant]
  15. FOLIC ACID [Concomitant]
  16. METHYLPREDNISOLONE [Concomitant]
  17. TETRACYCLINE [Concomitant]
  18. HEPARIN SODIUM [Concomitant]
  19. TRANEXAMIC ACID (TRANEXAMIC ACID) [Concomitant]
  20. URSODIOL [Concomitant]

REACTIONS (6)
  - BALANOPOSTHITIS [None]
  - CULTURE URINE POSITIVE [None]
  - NEUTROPENIA [None]
  - PLATELET COUNT DECREASED [None]
  - PSEUDOMONAS INFECTION [None]
  - STAPHYLOCOCCAL SEPSIS [None]
